FAERS Safety Report 20430321 (Version 1)
Quarter: 2022Q1

REPORT INFORMATION
  Report Type: Report from Study
  Country: FR (occurrence: FR)
  Receive Date: 20220204
  Receipt Date: 20220204
  Transmission Date: 20220423
  Serious: Yes (Death, Life-Threatening, Hospitalization, Other)
  Sender: FDA-Public Use
  Company Number: FR-SERVIER-S20006041

PATIENT

DRUGS (8)
  1. PEGASPARGASE [Suspect]
     Active Substance: PEGASPARGASE
     Indication: Acute lymphocytic leukaemia
     Dosage: 3170 IU (2500 IU/M?), D12
     Route: 042
     Dates: start: 20200601
  2. METHOTREXATE SODIUM [Suspect]
     Active Substance: METHOTREXATE SODIUM
     Indication: Acute lymphocytic leukaemia
     Dosage: 12 MG, D13
     Route: 037
     Dates: start: 20200602
  3. VINCRISTINE SULFATE [Suspect]
     Active Substance: VINCRISTINE SULFATE
     Indication: Acute lymphocytic leukaemia
     Dosage: 1.9 MG, D8, D15
     Route: 042
     Dates: start: 20200528
  4. DEXAMETHASONE PHOSPHATE [Suspect]
     Active Substance: DEXAMETHASONE PHOSPHATE
     Indication: Acute lymphocytic leukaemia
     Dosage: 8 MG, D8 TO D28
     Route: 048
     Dates: start: 20200528
  5. PREDNISOLONE SODIUM PHOSPHATE [Suspect]
     Active Substance: PREDNISOLONE SODIUM PHOSPHATE
     Indication: Acute lymphocytic leukaemia
     Dosage: 80 MG, D1 TO D7
     Route: 048
     Dates: start: 20200521, end: 20200527
  6. BACTRIM [Concomitant]
     Active Substance: SULFAMETHOXAZOLE\TRIMETHOPRIM
     Indication: Prophylaxis
     Dosage: 800 MG, 3 TIME IN A WEEK
     Route: 048
     Dates: start: 20200528
  7. BACTRIM [Concomitant]
     Active Substance: SULFAMETHOXAZOLE\TRIMETHOPRIM
     Indication: Pneumocystis jirovecii pneumonia
  8. TN UNSPECIFIED [Concomitant]
     Indication: Gastric disorder
     Dosage: 20 MG,
     Route: 048
     Dates: start: 20200522

REACTIONS (7)
  - Pancreatitis necrotising [Fatal]
  - Shock haemorrhagic [Fatal]
  - Cardio-respiratory arrest [Fatal]
  - Malaise [Not Recovered/Not Resolved]
  - White matter lesion [Not Recovered/Not Resolved]
  - Central nervous system vasculitis [Not Recovered/Not Resolved]
  - Coagulopathy [Recovered/Resolved]

NARRATIVE: CASE EVENT DATE: 20200608
